FAERS Safety Report 24993813 (Version 1)
Quarter: 2025Q1

REPORT INFORMATION
  Report Type: Report from Study
  Country: DE (occurrence: DE)
  Receive Date: 20250221
  Receipt Date: 20250221
  Transmission Date: 20250409
  Serious: Yes (Hospitalization)
  Sender: ABBVIE
  Company Number: DE-ABBVIE-6139521

PATIENT
  Age: 71 Year
  Sex: Male
  Weight: 109 kg

DRUGS (26)
  1. FOSCARBIDOPA\FOSLEVODOPA [Suspect]
     Active Substance: FOSCARBIDOPA\FOSLEVODOPA
     Indication: Parkinson^s disease
     Route: 058
     Dates: start: 20241120, end: 20241122
  2. FOSCARBIDOPA\FOSLEVODOPA [Suspect]
     Active Substance: FOSCARBIDOPA\FOSLEVODOPA
     Route: 058
     Dates: start: 20241122, end: 20241124
  3. FOSCARBIDOPA\FOSLEVODOPA [Suspect]
     Active Substance: FOSCARBIDOPA\FOSLEVODOPA
     Route: 058
     Dates: start: 20241124, end: 20241127
  4. FOSCARBIDOPA\FOSLEVODOPA [Suspect]
     Active Substance: FOSCARBIDOPA\FOSLEVODOPA
     Route: 058
     Dates: start: 20241127, end: 20241128
  5. FOSCARBIDOPA\FOSLEVODOPA [Suspect]
     Active Substance: FOSCARBIDOPA\FOSLEVODOPA
     Route: 058
     Dates: start: 20241128, end: 20241129
  6. FOSCARBIDOPA\FOSLEVODOPA [Suspect]
     Active Substance: FOSCARBIDOPA\FOSLEVODOPA
     Route: 058
     Dates: start: 20241129, end: 20241130
  7. FOSCARBIDOPA\FOSLEVODOPA [Suspect]
     Active Substance: FOSCARBIDOPA\FOSLEVODOPA
     Route: 058
     Dates: start: 20241130, end: 20241204
  8. FOSCARBIDOPA\FOSLEVODOPA [Suspect]
     Active Substance: FOSCARBIDOPA\FOSLEVODOPA
     Route: 058
     Dates: start: 20241204, end: 20241205
  9. FOSCARBIDOPA\FOSLEVODOPA [Suspect]
     Active Substance: FOSCARBIDOPA\FOSLEVODOPA
     Route: 058
     Dates: start: 20241205
  10. DARIFENACIN HYDROBROMIDE [Concomitant]
     Active Substance: DARIFENACIN HYDROBROMIDE
     Indication: Urge incontinence
     Route: 048
     Dates: start: 20241124
  11. DARIFENACIN HYDROBROMIDE [Concomitant]
     Active Substance: DARIFENACIN HYDROBROMIDE
     Indication: Urge incontinence
     Route: 048
     Dates: start: 2024, end: 20241121
  12. CLOZAPINE [Concomitant]
     Active Substance: CLOZAPINE
     Indication: Tremor
     Route: 048
     Dates: start: 20241128, end: 20241203
  13. CLOZAPINE [Concomitant]
     Active Substance: CLOZAPINE
     Indication: Tremor
     Route: 048
     Dates: start: 2019, end: 20241212
  14. CLOZAPINE [Concomitant]
     Active Substance: CLOZAPINE
     Indication: Tremor
     Route: 048
     Dates: start: 20241120, end: 20250205
  15. CLOZAPINE [Concomitant]
     Active Substance: CLOZAPINE
     Indication: Tremor
     Route: 048
     Dates: start: 20241128, end: 202501
  16. CLOZAPINE [Concomitant]
     Active Substance: CLOZAPINE
     Indication: Tremor
     Route: 048
     Dates: start: 202501
  17. CLOZAPINE [Concomitant]
     Active Substance: CLOZAPINE
     Indication: Tremor
     Route: 048
     Dates: start: 202501
  18. CLOZAPINE [Concomitant]
     Active Substance: CLOZAPINE
     Indication: Tremor
     Route: 048
     Dates: start: 202501
  19. CLOZAPINE [Concomitant]
     Active Substance: CLOZAPINE
     Indication: Tremor
     Route: 048
     Dates: start: 20241205, end: 20250117
  20. DULOXETINE [Concomitant]
     Active Substance: DULOXETINE
     Indication: Depression
     Route: 048
     Dates: start: 2019
  21. DULOXETINE [Concomitant]
     Active Substance: DULOXETINE
     Indication: Depression
     Route: 048
     Dates: start: 20241204
  22. ROSUVASTATIN [Concomitant]
     Active Substance: ROSUVASTATIN
     Indication: Hypercholesterolaemia
     Route: 048
  23. SITAGLIPTIN PHOSPHATE [Concomitant]
     Active Substance: SITAGLIPTIN PHOSPHATE
     Indication: Product used for unknown indication
     Route: 048
     Dates: start: 2010
  24. Milgamma [Concomitant]
     Indication: Product used for unknown indication
     Route: 048
  25. METFORMIN [Concomitant]
     Active Substance: METFORMIN HYDROCHLORIDE
     Indication: Type 2 diabetes mellitus
     Route: 048
     Dates: start: 2010
  26. SAFINAMIDE [Concomitant]
     Active Substance: SAFINAMIDE
     Indication: Product used for unknown indication
     Route: 048
     Dates: start: 202405

REACTIONS (1)
  - Skin infection [Recovered/Resolved]

NARRATIVE: CASE EVENT DATE: 20250103
